FAERS Safety Report 14952282 (Version 3)
Quarter: 2019Q1

REPORT INFORMATION
  Report Type: Spontaneous
  Country: US (occurrence: US)
  Receive Date: 20180530
  Receipt Date: 20190225
  Transmission Date: 20190417
  Serious: No
  Sender: FDA-Public Use
  Company Number: US-PFIZER INC-2018130015

PATIENT
  Age: 48 Year
  Sex: Female
  Weight: 86 kg

DRUGS (9)
  1. PARAPLATIN [Concomitant]
     Active Substance: CARBOPLATIN
     Indication: CHEMOTHERAPY
     Dosage: UNK
  2. DOCETAXEL. [Suspect]
     Active Substance: DOCETAXEL
     Dosage: 80 MG/8ML, CYCLIC (EVERY 3 WEEKS, 06 CYCLES)
     Dates: end: 20120430
  3. DOCETAXEL ACCORD [Suspect]
     Active Substance: DOCETAXEL
     Dosage: 80 MG/8ML, CYCLIC (EVERY THREE WEEKS, 06 CYCLES)
     Dates: end: 20120404
  4. HERCEPTIN [Concomitant]
     Active Substance: TRASTUZUMAB
     Indication: CHEMOTHERAPY
     Dosage: UNK
  5. DOCETAXEL. [Suspect]
     Active Substance: DOCETAXEL
     Indication: BREAST CANCER FEMALE
     Dosage: 20 MG/2ML, CYCLIC (EVERY 3 WEEKS, 06 CYCLES)
     Dates: start: 20111220
  6. DOCETAXEL ACCORD [Suspect]
     Active Substance: DOCETAXEL
     Indication: BREAST CANCER FEMALE
     Dosage: 20 MG/2ML, CYCLIC (EVERY THREE WEEKS, 06 CYCLES)
     Dates: start: 20111220
  7. DOCETAXEL SANDOZ [Suspect]
     Active Substance: DOCETAXEL
     Indication: BREAST CANCER FEMALE
     Dosage: 20 MG/2ML, CYCLIC (EVERY THREE WEEKS, 06 CYCLES)
     Dates: start: 20111220
  8. DOCETAXEL SANDOZ [Suspect]
     Active Substance: DOCETAXEL
     Dosage: 80 MG/8ML, CYCLIC (EVERY THREE WEEKS, 06 CYCLES)
     Dates: end: 20120404
  9. TAXOTERE [Concomitant]
     Active Substance: DOCETAXEL
     Indication: CHEMOTHERAPY
     Dosage: UNK

REACTIONS (5)
  - Hair texture abnormal [Not Recovered/Not Resolved]
  - Hair disorder [Not Recovered/Not Resolved]
  - Alopecia [Not Recovered/Not Resolved]
  - Hair colour changes [Not Recovered/Not Resolved]
  - Madarosis [Not Recovered/Not Resolved]

NARRATIVE: CASE EVENT DATE: 201210
